FAERS Safety Report 11761987 (Version 3)
Quarter: 2016Q1

REPORT INFORMATION
  Report Type: Spontaneous
  Country: US (occurrence: US)
  Receive Date: 20151120
  Receipt Date: 20160121
  Transmission Date: 20160525
  Serious: Yes (Other)
  Sender: FDA-Public Use
  Company Number: US-AMGEN-USASP2015123129

PATIENT
  Age: 59 Year
  Sex: Male
  Weight: 62.59 kg

DRUGS (11)
  1. PROCRIT [Suspect]
     Active Substance: ERYTHROPOIETIN
     Dosage: 20000 UNIT, 3 TIMES/WK
     Route: 058
     Dates: start: 20141104, end: 20151111
  2. PROCRIT [Suspect]
     Active Substance: ERYTHROPOIETIN
     Dosage: 10000 UNIT, QWK
     Route: 058
     Dates: start: 20110609, end: 20110811
  3. PROCRIT [Suspect]
     Active Substance: ERYTHROPOIETIN
     Dosage: 10000 UNIT, Q2WK
     Route: 058
     Dates: start: 20141017
  4. MYCOPHENOLIC ACID. [Concomitant]
     Active Substance: MYCOPHENOLIC ACID
     Dosage: UNK
     Dates: start: 20041008
  5. PROCRIT [Suspect]
     Active Substance: ERYTHROPOIETIN
     Indication: CHRONIC KIDNEY DISEASE
     Dosage: UNK, TWICE WEEKLY
     Route: 065
  6. PROCRIT [Suspect]
     Active Substance: ERYTHROPOIETIN
     Dosage: 60000 UNIT, 3 TIMES/WK
     Route: 065
     Dates: start: 2014
  7. CYCLOSPORINE. [Concomitant]
     Active Substance: CYCLOSPORINE
     Dosage: UNK
     Dates: start: 2004
  8. PROCRIT [Suspect]
     Active Substance: ERYTHROPOIETIN
     Dosage: 10000 UNIT, QWK
     Route: 058
     Dates: start: 20140924, end: 20141017
  9. PROCRIT [Suspect]
     Active Substance: ERYTHROPOIETIN
     Dosage: 30,000 UNIT, TWICE WEEKLY
     Route: 058
     Dates: end: 20151111
  10. PROCRIT [Suspect]
     Active Substance: ERYTHROPOIETIN
     Indication: NEPHROGENIC ANAEMIA
     Dosage: UNK
     Route: 065
     Dates: start: 2004
  11. PROCRIT [Suspect]
     Active Substance: ERYTHROPOIETIN
     Dosage: 4000 UNIT, QWK
     Route: 065
     Dates: start: 20080813, end: 20090901

REACTIONS (4)
  - Anti-erythropoietin antibody positive [Unknown]
  - Unevaluable event [Unknown]
  - Anaemia [Not Recovered/Not Resolved]
  - No therapeutic response [Not Recovered/Not Resolved]

NARRATIVE: CASE EVENT DATE: 201410
